FAERS Safety Report 24766049 (Version 1)
Quarter: 2024Q4

REPORT INFORMATION
  Report Type: Spontaneous
  Country: GB (occurrence: GB)
  Receive Date: 20241223
  Receipt Date: 20241223
  Transmission Date: 20250114
  Serious: Yes (Hospitalization, Other)
  Sender: TEVA
  Company Number: None

PATIENT
  Age: 76 Year
  Sex: Male

DRUGS (12)
  1. SIMVASTATIN [Suspect]
     Active Substance: SIMVASTATIN
     Indication: Product used for unknown indication
     Route: 065
  2. CIPROFLOXACIN HYDROCHLORIDE\DEXAMETHASONE [Concomitant]
     Active Substance: CIPROFLOXACIN HYDROCHLORIDE\DEXAMETHASONE
     Indication: Product used for unknown indication
     Route: 065
  3. Tramazoline + Dexamethasone [Concomitant]
     Indication: Product used for unknown indication
     Route: 065
  4. CODEINE [Concomitant]
     Active Substance: CODEINE
     Indication: Product used for unknown indication
     Dosage: 15 MG TABLETS TAKE 1-2 EVERY 6 HRS PRN IF NO RELIEF WITH PARACETAMOL 100 TABLET
     Route: 065
  5. ALLOPURINOL [Concomitant]
     Active Substance: ALLOPURINOL
     Indication: Product used for unknown indication
     Route: 065
  6. DEXAMETHASONE [Concomitant]
     Active Substance: DEXAMETHASONE
     Indication: Product used for unknown indication
     Dosage: 500 MICROGRAM TABLETS TO BE TAKEN AS DIRECTED- TAKES 1 OM DOSE INCREASED BY INPAT ONCOL
     Route: 065
  7. CYCLIZINE [Concomitant]
     Active Substance: CYCLIZINE
     Indication: Product used for unknown indication
     Dosage: TIME INTERVAL: 0.33333333 DAYS: 50 MG TABLETS ONE TO BE TAKEN UP TO THREE TIMES A DAY FOR NAUSEA ...
     Route: 065
  8. SIMVASTATIN [Concomitant]
     Active Substance: SIMVASTATIN
     Indication: Product used for unknown indication
     Dosage: 20 MG TABLETS ONE TO BE TAKEN AT NIGHT
     Route: 065
  9. Decapeptyl [Concomitant]
     Indication: Product used for unknown indication
     Dosage: 22.5 MG POWDER AND SOLVENT FOR SUSPENSION FOR INJECTION VIALS AS DIRECTED - DUE THIS WEEK OR NEXT...
     Route: 065
  10. AZATHIOPRINE [Concomitant]
     Active Substance: AZATHIOPRINE
     Indication: Product used for unknown indication
     Dosage: 25 MG 1OM- HAS NOT BEEN USING RECENTLY DUE TO ILLNESS
     Route: 065
  11. DIAZEPAM [Concomitant]
     Active Substance: DIAZEPAM
     Indication: Product used for unknown indication
     Dosage: TIME INTERVAL: 0.33333333 DAYS: DIAZEPAM 2 MG TABLETS 1-2 TO BE TAKEN THREE TIMES A DAY PRN FOR A...
     Route: 065
  12. LANSOPRAZOLE [Concomitant]
     Active Substance: LANSOPRAZOLE
     Indication: Product used for unknown indication
     Dosage: 30 MG GASTRO-RESISTANT CAPSULES ONE TO BE TAKEN EACH MORNING
     Route: 065

REACTIONS (1)
  - Neck pain [Unknown]
